FAERS Safety Report 5480760-1 (Version None)
Quarter: 2007Q4

REPORT INFORMATION
  Report Type: 
  Country: None (occurrence: None)
  Receive Date: 20071009
  Receipt Date: 20070928
  Transmission Date: 20080405
  Serious: Yes (Other)
  Sender: FDA-Public Use
  Company Number: US-SHR-US-2007-006390

PATIENT
  Age: 80 Year
  Sex: Female
  Weight: 62.585 kg

DRUGS (28)
  1. MAGNEVIST [Suspect]
     Indication: NUCLEAR MAGNETIC RESONANCE IMAGING
     Dosage: UNK, 1 DOSE
     Route: 042
     Dates: start: 19990609, end: 19990609
  2. MAGNEVIST [Suspect]
     Dosage: UNK, 1 DOSE
     Route: 042
     Dates: start: 20030129, end: 20030129
  3. MAGNEVIST [Suspect]
     Dosage: UNK, 1 DOSE
     Route: 042
     Dates: start: 20030409, end: 20030409
  4. MAGNEVIST [Suspect]
     Dosage: UNK, 1 DOSE
     Route: 042
     Dates: start: 20040125, end: 20040125
  5. MAGNEVIST [Suspect]
     Dosage: UNK, 1 DOSE
     Route: 042
     Dates: start: 20040426, end: 20040426
  6. MAGNEVIST [Suspect]
     Dosage: UNK, 1 DOSE
     Route: 042
     Dates: start: 20041008, end: 20041008
  7. MAGNEVIST [Suspect]
     Dosage: UNK, 1 DOSE
     Route: 042
     Dates: start: 20050210, end: 20050210
  8. MAGNEVIST [Suspect]
     Dosage: UNK, 1 DOSE
     Route: 042
     Dates: start: 20050214, end: 20050214
  9. NPH INSULIN [Concomitant]
     Dosage: 15 UNITS Q AM
     Route: 058
  10. REGULAR INSULIN [Concomitant]
     Dosage: 6 UNITS QD
     Route: 058
  11. ASPIRIN [Concomitant]
     Dosage: 162 MG, 1X/DAY
     Route: 048
  12. CALCITRIOL [Concomitant]
     Dosage: .5 A?G, 1X/DAY
     Route: 048
  13. CALCIUM CARBONATE [Concomitant]
     Dosage: 1250 MG, 3X/DAY
     Route: 048
  14. PLAVIX [Concomitant]
     Dosage: 75 MG, 1X/DAY
     Route: 048
  15. VITAMIN B-12 [Concomitant]
  16. RANITIDINE HCL [Concomitant]
     Dosage: 150 MG, 3X/DAY
     Route: 048
  17. FOLIC ACID [Concomitant]
  18. GABAPENTIN [Concomitant]
     Dosage: 100 MG, QAM
     Route: 048
  19. HYDRALAZINE HCL [Concomitant]
     Dosage: 10 MG, 4X/DAY
     Route: 048
  20. LIPITOR [Concomitant]
     Dosage: 30 MG, BED T.
     Route: 048
  21. LOSARTAN POTASSIUM [Concomitant]
     Dosage: 100 MG, 1X/DAY
     Route: 048
  22. METOPROLOL TARTRATE [Concomitant]
     Dosage: 50 MG, 2X/DAY
     Route: 048
  23. NEPHROCAPS [Concomitant]
     Dosage: 1 CAP(S), 1X/DAY
     Route: 048
  24. VIAGRA [Concomitant]
     Indication: PULMONARY HYPERTENSION
     Dosage: 25 MG, 3X/DAY
     Route: 048
     Dates: start: 20060501
  25. NAPROXEN [Concomitant]
     Dosage: 250 MG, 1X/DAY
     Route: 048
  26. MAGNESIUM OXIDE [Concomitant]
     Dosage: 800 MG, 3X/DAY
     Route: 048
  27. SEROQUEL [Concomitant]
     Dosage: 25 MG, BED T.
     Dates: start: 20040301
  28. SEVELAMER [Concomitant]
     Dosage: 2400 MG, 3X/DAY
     Route: 048

REACTIONS (2)
  - NEPHROGENIC SYSTEMIC FIBROSIS [None]
  - PULMONARY OEDEMA [None]
